FAERS Safety Report 25086821 (Version 3)
Quarter: 2025Q2

REPORT INFORMATION
  Report Type: Spontaneous
  Country: FR (occurrence: FR)
  Receive Date: 20250318
  Receipt Date: 20250507
  Transmission Date: 20250716
  Serious: Yes (Other)
  Sender: JOHNSON AND JOHNSON
  Company Number: None

PATIENT
  Age: 34 Year
  Sex: Male

DRUGS (8)
  1. RISPERIDONE [Suspect]
     Active Substance: RISPERIDONE
     Indication: Product used for unknown indication
     Route: 048
     Dates: start: 20241115
  2. RISPERIDONE [Suspect]
     Active Substance: RISPERIDONE
  3. RISPERIDONE [Suspect]
     Active Substance: RISPERIDONE
  4. RISPERIDONE [Suspect]
     Active Substance: RISPERIDONE
  5. RISPERIDONE [Suspect]
     Active Substance: RISPERIDONE
  6. RISPERIDONE [Suspect]
     Active Substance: RISPERIDONE
  7. COCAINE [Suspect]
     Active Substance: COCAINE
     Indication: Product used for unknown indication
     Dates: start: 20241115
  8. TROPATEPINE HYDROCHLORIDE [Suspect]
     Active Substance: TROPATEPINE HYDROCHLORIDE
     Indication: Product used for unknown indication
     Route: 048
     Dates: start: 20241115

REACTIONS (5)
  - Substance use disorder [Unknown]
  - Drug use disorder [Unknown]
  - Anticholinergic syndrome [Unknown]
  - Hypotension [Unknown]
  - Mydriasis [Unknown]

NARRATIVE: CASE EVENT DATE: 20241115
